FAERS Safety Report 17315115 (Version 1)
Quarter: 2020Q1

REPORT INFORMATION
  Report Type: Report from Study
  Country: PK (occurrence: PK)
  Receive Date: 20200124
  Receipt Date: 20200124
  Transmission Date: 20200409
  Serious: Yes (Death)
  Sender: FDA-Public Use
  Company Number: NVSC2020PK016092

PATIENT
  Age: 30 Year
  Sex: Male

DRUGS (1)
  1. TASIGNA [Suspect]
     Active Substance: NILOTINIB
     Indication: CHRONIC MYELOID LEUKAEMIA
     Dosage: 2 DF, BID (2 IN THE MORNING AND 2 IN EVENING, TOTAL 800MG)
     Route: 048
     Dates: start: 20140805

REACTIONS (1)
  - Death [Fatal]

NARRATIVE: CASE EVENT DATE: 20190701
